FAERS Safety Report 9500558 (Version 1)
Quarter: 2013Q1

REPORT INFORMATION
  Report Type: Spontaneous
  Country: US (occurrence: None)
  Receive Date: 20130107
  Receipt Date: 20130107
  Transmission Date: 20140127
  Serious: No
  Sender: FDA-Public Use
  Company Number: PHHY2012US100584

PATIENT
  Age: 58 Year
  Sex: Female
  Weight: 68 kg

DRUGS (16)
  1. GILENYA [Suspect]
     Indication: MULTIPLE SCLEROSIS
     Route: 048
     Dates: start: 20110608, end: 20120601
  2. ALPRAZOLAM (ALPRAZOLAM) [Concomitant]
  3. HALOBETASOL PROPIONATE (ULOBETASOL PROPIONATE) [Concomitant]
  4. LISINOPRIL W/ HYDROCHLOROTHIAZIDE (HYDROCHLOROTHIAZIDE, LISINOPRIL) [Concomitant]
  5. NEURONTIN (GABAPENTIN) [Concomitant]
  6. ACIDOPHILUS (LACTOBACILLUS ACIDOPHILUS) [Concomitant]
  7. COENZYME Q10 (UBIDECARENONE) [Concomitant]
  8. GEMIFIBROZIL (GEMFIBROZIL) [Concomitant]
  9. GLUCOSAMINE (GLUCOSAMINE) [Concomitant]
  10. LEVSIN (HYOSCYAMINE SULFATE) [Concomitant]
  11. LYRICA (PREGABALIN) [Concomitant]
  12. METFORMIN (METFORMIN) [Concomitant]
  13. VITAMIN B6 (PYRIDOXINE HYDROCHLORIDE) [Concomitant]
  14. VITAMIN C [Concomitant]
  15. VITAMIN D (ERGOCALCIFEROL) [Concomitant]
  16. VITAMIN E (TOCOPHEROL) [Concomitant]

REACTIONS (7)
  - Lymphocyte count decreased [None]
  - Full blood count decreased [None]
  - Glycosylated haemoglobin increased [None]
  - Neutrophil percentage increased [None]
  - Monocyte percentage increased [None]
  - White blood cell count decreased [None]
  - Neutrophil count decreased [None]
